FAERS Safety Report 21937503 (Version 1)
Quarter: 2023Q1

REPORT INFORMATION
  Report Type: Report from Study
  Country: CA (occurrence: CA)
  Receive Date: 20230201
  Receipt Date: 20230201
  Transmission Date: 20230417
  Serious: Yes (Other)
  Sender: FDA-Public Use
  Company Number: CA-GILEAD-2022-0604847

PATIENT
  Age: 62 Year
  Sex: Female

DRUGS (11)
  1. SACITUZUMAB GOVITECAN-HZIY [Suspect]
     Active Substance: SACITUZUMAB GOVITECAN-HZIY
     Indication: Triple negative breast cancer
     Dosage: 730 MG
     Route: 042
     Dates: start: 20221021
  2. SACITUZUMAB GOVITECAN-HZIY [Suspect]
     Active Substance: SACITUZUMAB GOVITECAN-HZIY
     Dosage: UNK, DAY 1, 8
     Route: 042
     Dates: start: 20221124, end: 20221215
  3. ADRIAMYCIN;CISPLATIN [Concomitant]
  4. TAXOL [Concomitant]
     Active Substance: PACLITAXEL
  5. XELODA [Concomitant]
     Active Substance: CAPECITABINE
  6. TYLENOL [Concomitant]
     Active Substance: ACETAMINOPHEN
     Dosage: 1000 MG
  7. PREGABALIN [Concomitant]
     Active Substance: PREGABALIN
     Dosage: TWICE DAILY 75 MG
  8. CALCIUM [Concomitant]
     Active Substance: CALCIUM
     Dosage: 1000 MG
  9. VIT D [VITAMIN D NOS] [Concomitant]
     Dosage: 10000 IU
  10. VITAMIN B COMPLEX [Concomitant]
     Active Substance: CYANOCOBALAMIN\DEXPANTHENOL\NIACINAMIDE\PYRIDOXINE HYDROCHLORIDE\RIBOFLAVIN 5^-PHOSPHATE SODIUM\THIA
  11. ZOMETA [Concomitant]
     Active Substance: ZOLEDRONIC ACID

REACTIONS (8)
  - Disease progression [Unknown]
  - Neutrophil count decreased [Not Recovered/Not Resolved]
  - Weight fluctuation [Unknown]
  - Neutrophil count decreased [Unknown]
  - Weight fluctuation [Unknown]
  - Inappropriate schedule of product administration [Unknown]
  - Weight fluctuation [Unknown]
  - Weight fluctuation [Unknown]

NARRATIVE: CASE EVENT DATE: 20221124
